FAERS Safety Report 5799863-7 (Version None)
Quarter: 2008Q3

REPORT INFORMATION
  Report Type: 
  Country: None (occurrence: None)
  Receive Date: 20080701
  Receipt Date: 20080617
  Transmission Date: 20090109
  Serious: Yes (Hospitalization)
  Sender: FDA-Public Use
  Company Number: 2008BI013654

PATIENT
  Age: 65 Year
  Sex: Male
  Weight: 83.9154 kg

DRUGS (2)
  1. TYSABRI [Suspect]
     Indication: MULTIPLE SCLEROSIS
     Dosage: 300 MG;QM; IV
     Route: 042
     Dates: start: 20080222
  2. AVONEX [Concomitant]

REACTIONS (6)
  - CONDITION AGGRAVATED [None]
  - DYSURIA [None]
  - GAIT DISTURBANCE [None]
  - MULTIPLE SCLEROSIS [None]
  - ROTATOR CUFF SYNDROME [None]
  - WOUND [None]
